FAERS Safety Report 9319833 (Version 1)
Quarter: 2013Q2

REPORT INFORMATION
  Report Type: Spontaneous
  Country: US (occurrence: US)
  Receive Date: 20130530
  Receipt Date: 20130530
  Transmission Date: 20140414
  Serious: Yes (Death)
  Sender: FDA-Public Use
  Company Number: US-GILEAD-2013-0076218

PATIENT
  Age: 74 Year
  Sex: Male

DRUGS (10)
  1. LETAIRIS [Suspect]
     Indication: PRODUCT USED FOR UNKNOWN INDICATION
     Dosage: 10 MG, QD
     Route: 048
     Dates: start: 20091207
  2. ADCIRCA [Concomitant]
  3. AMBIEN [Concomitant]
  4. NEURONTIN [Concomitant]
  5. TORSEMIDE [Concomitant]
  6. AMLODIPINE [Concomitant]
  7. PRAVASTATIN [Concomitant]
  8. PLAVIX [Concomitant]
  9. OMEPRAZOLE [Concomitant]
  10. POTASSIUM [Concomitant]

REACTIONS (1)
  - Death [Fatal]
